FAERS Safety Report 25948034 (Version 2)
Quarter: 2025Q4

REPORT INFORMATION
  Report Type: Spontaneous
  Country: EU (occurrence: EU)
  Receive Date: 20251022
  Receipt Date: 20251114
  Transmission Date: 20260118
  Serious: Yes (Hospitalization)
  Sender: ROCHE
  Company Number: None

PATIENT
  Age: 76 Year
  Sex: Female
  Weight: 62 kg

DRUGS (11)
  1. TECENTRIQ [Suspect]
     Active Substance: ATEZOLIZUMAB
     Indication: Small cell lung cancer
     Dosage: 1200 MG, 21/21 DAYS
     Route: 042
     Dates: start: 20250903, end: 20250924
  2. CARBOPLATIN [Suspect]
     Active Substance: CARBOPLATIN
     Indication: Small cell lung cancer
     Dosage: 5 AUC 21/21 DAYS
     Route: 042
     Dates: start: 20250903, end: 20250924
  3. CARBOPLATIN [Suspect]
     Active Substance: CARBOPLATIN
     Dosage: 5 AUC 21/21 DAYS
     Route: 042
     Dates: start: 20250903, end: 20250924
  4. ETOPOSIDE [Suspect]
     Active Substance: ETOPOSIDE
     Indication: Small cell lung cancer
     Dosage: 100 MG/M2 ON DAYS 1, 2 AND 3 OF EACH CYCLE
     Route: 042
     Dates: start: 20250903, end: 20250924
  5. GABAPENTIN [Concomitant]
     Active Substance: GABAPENTIN
  6. FENTANYL [Concomitant]
     Active Substance: FENTANYL
  7. OMEPRAZOLE [Concomitant]
     Active Substance: OMEPRAZOLE
  8. BUPRENORPHINE [Concomitant]
     Active Substance: BUPRENORPHINE
  9. Apixabano [Concomitant]
  10. NAPROXEN [Concomitant]
     Active Substance: NAPROXEN
  11. SULPIRIDE [Concomitant]
     Active Substance: SULPIRIDE

REACTIONS (4)
  - Cerebrovascular accident [Recovered/Resolved with Sequelae]
  - Hemiparesis [Recovering/Resolving]
  - Dysarthria [Recovered/Resolved]
  - Facial paralysis [Recovered/Resolved]

NARRATIVE: CASE EVENT DATE: 20250925
